FAERS Safety Report 5353075-X (Version None)
Quarter: 2007Q2

REPORT INFORMATION
  Report Type: 
  Country: None (occurrence: None)
  Receive Date: 20070611
  Receipt Date: 20070530
  Transmission Date: 20071010
  Serious: Yes (Other)
  Sender: FDA-Public Use
  Company Number: JP-PFIZER INC-2007044886

PATIENT
  Age: 37 Year
  Sex: Female

DRUGS (2)
  1. NORVASC [Suspect]
     Dosage: DAILY DOSE:25MG
     Route: 048
  2. DRUG, UNSPECIFIED [Suspect]

REACTIONS (3)
  - COMA [None]
  - INTENTIONAL OVERDOSE [None]
  - SUICIDE ATTEMPT [None]
